FAERS Safety Report 9320661 (Version 3)
Quarter: 2013Q3

REPORT INFORMATION
  Report Type: Spontaneous
  Country: US (occurrence: US)
  Receive Date: 20130531
  Receipt Date: 20130920
  Transmission Date: 20140515
  Serious: Yes (Other)
  Sender: FDA-Public Use
  Company Number: US-BIOGENIDEC-2013BI048164

PATIENT
  Age: 57 Year
  Sex: Female

DRUGS (2)
  1. AVONEX [Suspect]
     Indication: MULTIPLE SCLEROSIS
     Route: 030
     Dates: start: 201210, end: 201211
  2. LYRICA [Concomitant]
     Indication: NERVE INJURY

REACTIONS (5)
  - B-cell lymphoma [Not Recovered/Not Resolved]
  - Ill-defined disorder [Unknown]
  - Convulsion [Recovered/Resolved]
  - Nervous system disorder [Not Recovered/Not Resolved]
  - Influenza like illness [Recovered/Resolved]
